FAERS Safety Report 8663924 (Version 2)
Quarter: 2013Q1

REPORT INFORMATION
  Report Type: Report from Study
  Country: JP (occurrence: JP)
  Receive Date: 20120713
  Receipt Date: 20130129
  Transmission Date: 20140127
  Serious: Yes (Hospitalization)
  Sender: FDA-Public Use
  Company Number: JP-009507513-1207JPN000059

PATIENT
  Age: 64 Year
  Sex: Male

DRUGS (3)
  1. REBETOL [Suspect]
     Indication: HEPATITIS C
     Dosage: 200 MG IN THE MORNING AND 400 MG IN THE EVENING
     Route: 048
     Dates: start: 20110302, end: 20110506
  2. FERON [Suspect]
     Indication: HEPATITIS C
     Dosage: 3 MILLION IU, TIW
     Route: 041
     Dates: start: 20110302, end: 20110314
  3. FERON [Suspect]
     Dosage: 6 MILLION IU, BIW
     Route: 041
     Dates: start: 20110317, end: 20110502

REACTIONS (2)
  - Hepatic cancer [Recovered/Resolved]
  - Pyrexia [Recovered/Resolved]
